FAERS Safety Report 4916463-9 (Version None)
Quarter: 2006Q1

REPORT INFORMATION
  Report Type: 
  Country: None (occurrence: None)
  Receive Date: 20060220
  Receipt Date: 20051115
  Transmission Date: 20060701
  Serious: Yes (Death)
  Sender: FDA-Public Use
  Company Number: 2005SE06618

PATIENT
  Age: 13727 Day
  Sex: Male
  Weight: 88 kg

DRUGS (11)
  1. QUETIAPINE [Suspect]
     Indication: BIPOLAR I DISORDER
     Route: 048
     Dates: start: 20050830, end: 20050830
  2. QUETIAPINE [Suspect]
     Route: 048
     Dates: start: 20050831, end: 20050831
  3. QUETIAPINE [Suspect]
     Route: 048
     Dates: start: 20050901, end: 20050901
  4. QUETIAPINE [Suspect]
     Route: 048
     Dates: start: 20050902, end: 20050902
  5. QUETIAPINE [Suspect]
     Route: 048
     Dates: start: 20050903, end: 20050903
  6. QUETIAPINE [Suspect]
     Route: 048
     Dates: start: 20050904, end: 20050926
  7. QUETIAPINE [Suspect]
     Route: 048
     Dates: start: 20050927, end: 20051010
  8. QUETIAPINE [Suspect]
     Route: 048
     Dates: start: 20051011
  9. BIPERIDENI [Concomitant]
     Indication: AKATHISIA
     Route: 048
     Dates: start: 20051011, end: 20051024
  10. BIPERIDENI [Concomitant]
     Route: 048
     Dates: start: 20051025, end: 20051107
  11. BIPERIDENI [Concomitant]
     Route: 048
     Dates: start: 20051108, end: 20051110

REACTIONS (1)
  - CARDIOMYOPATHY [None]
